FAERS Safety Report 7327917-2 (Version None)
Quarter: 2011Q1

REPORT INFORMATION
  Report Type: 
  Country: None (occurrence: None)
  Receive Date: 20110222
  Receipt Date: 20110208
  Transmission Date: 20110831
  Serious: Yes (Other)
  Sender: FDA-Public Use
  Company Number: USA/USA/11/0017333

PATIENT
  Age: 31 Year
  Sex: Female
  Weight: 86.1834 kg

DRUGS (2)
  1. RANITIDINE [Suspect]
     Indication: GASTRIC DISORDER
  2. TUMS (CALCIUM CARBONATE) [Concomitant]

REACTIONS (1)
  - OPIATES POSITIVE [None]
